FAERS Safety Report 5754505-1 (Version None)
Quarter: 2008Q2

REPORT INFORMATION
  Report Type: 
  Country: None (occurrence: None)
  Receive Date: 20080530
  Receipt Date: 20080326
  Transmission Date: 20081010
  Serious: No
  Sender: FDA-Public Use
  Company Number: US-BOEHRINGER INGELHEIM GMBH, GERMANY-2008-BP-04664BP

PATIENT
  Age: 40 Year
  Sex: Female

DRUGS (2)
  1. SPIRIVA [Suspect]
     Indication: WHEEZING
     Route: 055
     Dates: start: 20080325
  2. SPIRIVA [Suspect]
     Indication: INFLUENZA

REACTIONS (3)
  - DIARRHOEA [None]
  - FLATULENCE [None]
  - GASTROINTESTINAL PAIN [None]
